FAERS Safety Report 5410386-7 (Version None)
Quarter: 2007Q3

REPORT INFORMATION
  Report Type: 
  Country: None (occurrence: None)
  Receive Date: 20070808
  Receipt Date: 20070725
  Transmission Date: 20080115
  Serious: Yes (Other)
  Sender: FDA-Public Use
  Company Number: 8018630

PATIENT
  Age: 14 Year
  Sex: Male

DRUGS (2)
  1. EQUASYM [Suspect]
     Indication: ATTENTION DEFICIT/HYPERACTIVITY DISORDER
     Dosage: 10 MG 3/D PO
     Route: 048
     Dates: start: 20050425, end: 20051123
  2. CALCIPOTRIENE [Concomitant]

REACTIONS (3)
  - CONTUSION [None]
  - DYSPEPSIA [None]
  - WHITE BLOOD CELL COUNT DECREASED [None]
